FAERS Safety Report 9597910 (Version 1)
Quarter: 2013Q4

REPORT INFORMATION
  Report Type: Spontaneous
  Country: US (occurrence: US)
  Receive Date: 20131004
  Receipt Date: 20131004
  Transmission Date: 20140711
  Serious: No
  Sender: FDA-Public Use
  Company Number: US-AMGEN-USASP2013021786

PATIENT
  Age: 66 Year
  Sex: Male
  Weight: 81.18 kg

DRUGS (10)
  1. ENBREL [Suspect]
     Indication: PRODUCT USED FOR UNKNOWN INDICATION
     Dosage: 50 MG, QWK
     Route: 058
  2. ASPIRIN [Concomitant]
     Dosage: 81 MG, UNK
  3. VITAMIN B 12 [Concomitant]
     Dosage: 1000 UNK, UNK
  4. OMEPRAZOLE [Concomitant]
     Dosage: 10 MG, UNK
  5. DOXAZOSIN [Concomitant]
     Dosage: 1 MG, UNK
  6. LANTUS [Concomitant]
     Dosage: 100 ML, UNK
  7. METHOTREXATE [Concomitant]
     Dosage: 25 MG/ML, UNK
  8. FOLIC ACID [Concomitant]
     Dosage: UNK
  9. PLAQUENIL                          /00072602/ [Concomitant]
     Dosage: 200 MG, UNK
  10. NOVOLIN [Concomitant]
     Dosage: UNK,U-100

REACTIONS (1)
  - Injection site rash [Unknown]
